FAERS Safety Report 9827378 (Version 2)
Quarter: 2014Q2

REPORT INFORMATION
  Report Type: Report from Study
  Country: US (occurrence: US)
  Receive Date: 20140117
  Receipt Date: 20140501
  Transmission Date: 20141212
  Serious: Yes (Hospitalization)
  Sender: FDA-Public Use
  Company Number: US-PURDUE-USA-2014-0110277

PATIENT
  Age: 47 Year
  Sex: Male

DRUGS (3)
  1. OXY CR TAB [Suspect]
     Indication: BACK PAIN
     Dosage: 20 MG, TID
     Route: 048
  2. OXY CR TAB [Suspect]
     Dosage: 20 MG, BID
     Route: 048
  3. PERCOCET                           /00446701/ [Concomitant]
     Indication: PAIN
     Dosage: UNKNOWN

REACTIONS (11)
  - Myocardial infarction [Unknown]
  - Stent placement [Unknown]
  - Folliculitis [Unknown]
  - Dermatitis [Unknown]
  - Wound infection staphylococcal [Unknown]
  - Herpes zoster [Unknown]
  - Cyst [Unknown]
  - Drug screen negative [Unknown]
  - Drug effect decreased [Unknown]
  - Intentional product misuse [Unknown]
  - Product quality issue [Unknown]
